FAERS Safety Report 14205043 (Version 1)
Quarter: 2017Q4

REPORT INFORMATION
  Report Type: Spontaneous
  Country: US (occurrence: US)
  Receive Date: 20171119
  Receipt Date: 20171119
  Transmission Date: 20180321
  Serious: Yes (Disabling)
  Sender: FDA-Public Use
  Company Number: None

PATIENT
  Sex: Female
  Weight: 81 kg

DRUGS (4)
  1. DESONIDE LOTION .05% [Suspect]
     Active Substance: DESONIDE
     Indication: INFLAMMATION
     Route: 061
     Dates: start: 20140602, end: 20160207
  2. MULTI-VITAMIN [Concomitant]
     Active Substance: .ALPHA.-TOCOPHEROL ACETATE, DL-\ASCORBIC ACID\CYANOCOBALAMIN\FLUORIDE ION\FOLIC ACID\NIACIN\PYRIDOXINE\RIBOFLAVIN\THIAMINE\VITAMIN A\VITAMIN D
  3. CLOBETESOL OINTMENT [Suspect]
     Active Substance: CLOBETASOL
     Indication: ECZEMA
     Route: 061
  4. VITAMIN D [Concomitant]
     Active Substance: CHOLECALCIFEROL

REACTIONS (4)
  - Skin injury [None]
  - Skin exfoliation [None]
  - Skin burning sensation [None]
  - Pruritus [None]

NARRATIVE: CASE EVENT DATE: 20160207
